FAERS Safety Report 8382910 (Version 2)
Quarter: 2015Q1

REPORT INFORMATION
  Report Type: Report from Study
  Country: US (occurrence: US)
  Receive Date: 20120201
  Receipt Date: 20150226
  Transmission Date: 20150721
  Serious: Yes (Death)
  Sender: FDA-Public Use
  Company Number: US-ROCHE-1035376

PATIENT
  Sex: Male
  Weight: 81 kg

DRUGS (4)
  1. AVASTIN [Suspect]
     Active Substance: BEVACIZUMAB
     Dosage: FORM STRENGTH: 100 MG VIAL AND 400 MG VIAL?10 MG/KG?OVER 60 MINUTES
     Route: 042
     Dates: start: 20080129
  2. AVASTIN [Suspect]
     Active Substance: BEVACIZUMAB
     Indication: BRAIN NEOPLASM MALIGNANT
     Dosage: FORM STRENGTH: 100 MG VIAL AND 400 MG VIAL?10 MG/KG?OVER 90 MINUTES
     Route: 042
     Dates: start: 20080115
  3. AVASTIN [Suspect]
     Active Substance: BEVACIZUMAB
     Dosage: FORM STRENGTH: 100 MG VIAL AND 400 MG VIAL?10 MG/KG?OVER 30 MINUTES
     Route: 042
     Dates: start: 20080212
  4. AVASTIN [Suspect]
     Active Substance: BEVACIZUMAB
     Dosage: FORM STRENGTH: 100 MG VIAL AND 400 MG VIAL?10 MG/KG?OVER 30 MINUTES
     Route: 042
     Dates: start: 20080226

REACTIONS (2)
  - Death [Fatal]
  - Off label use [Unknown]
